FAERS Safety Report 7236628-3 (Version None)
Quarter: 2011Q1

REPORT INFORMATION
  Report Type: 
  Country: None (occurrence: None)
  Receive Date: 20110112
  Receipt Date: 20101223
  Transmission Date: 20110831
  Serious: Yes (Disabling, Other)
  Sender: FDA-Public Use
  Company Number: ACO_21303_2010

PATIENT
  Age: 45 Year
  Sex: Female
  Weight: 56.7 kg

DRUGS (6)
  1. REBIF [Concomitant]
  2. MOTRIN [Concomitant]
  3. BACLOFEN [Concomitant]
  4. PROPRANOLOL [Concomitant]
  5. AMPYRA [Suspect]
     Indication: GAIT DISTURBANCE
     Dosage: 10 MG, BID, ORAL
     Route: 048
     Dates: end: 20100818
  6. PROVIGIL [Concomitant]

REACTIONS (7)
  - ABASIA [None]
  - MULTIPLE SCLEROSIS RELAPSE [None]
  - DRUG INEFFECTIVE [None]
  - GAIT DISTURBANCE [None]
  - FALL [None]
  - ACTIVITIES OF DAILY LIVING IMPAIRED [None]
  - IMPAIRED WORK ABILITY [None]
